FAERS Safety Report 23438888 (Version 2)
Quarter: 2024Q1

REPORT INFORMATION
  Report Type: Spontaneous
  Country: US (occurrence: US)
  Receive Date: 20240124
  Receipt Date: 20240318
  Transmission Date: 20240409
  Serious: No
  Sender: FDA-Public Use
  Company Number: US-SANOFI-01902794

PATIENT
  Age: 75 Year
  Sex: Female
  Weight: 77.551 kg

DRUGS (17)
  1. DUPIXENT [Suspect]
     Active Substance: DUPILUMAB
     Indication: Dermatitis atopic
     Dosage: 600 MG, 1X
     Route: 058
  2. DUPIXENT [Suspect]
     Active Substance: DUPILUMAB
     Indication: Dermatitis allergic
     Dosage: 300 MG, QOW
     Route: 058
  3. OMEPRAZOLE [Concomitant]
     Active Substance: OMEPRAZOLE
     Dosage: UNK
  4. SYNTHROID [Concomitant]
     Active Substance: LEVOTHYROXINE SODIUM
  5. ATORVASTATIN CALCIUM [Concomitant]
     Active Substance: ATORVASTATIN CALCIUM
  6. AVAPRO [Concomitant]
     Active Substance: IRBESARTAN
  7. AVAPRO [Concomitant]
     Active Substance: IRBESARTAN
  8. PLAQUENIL [Concomitant]
     Active Substance: HYDROXYCHLOROQUINE SULFATE
  9. LASIX [Concomitant]
     Active Substance: FUROSEMIDE
  10. FLONASE ALLERGY RELIEF [Concomitant]
     Active Substance: FLUTICASONE PROPIONATE
  11. FLONASE ALLERGY RELIEF [Concomitant]
     Active Substance: FLUTICASONE PROPIONATE
  12. ALLOPURINOL [Concomitant]
     Active Substance: ALLOPURINOL
  13. ALLOPURINOL [Concomitant]
     Active Substance: ALLOPURINOL
  14. MELATONIN [Concomitant]
     Active Substance: MELATONIN
  15. MELATONIN [Concomitant]
     Active Substance: MELATONIN
  16. ARANESP [Concomitant]
     Active Substance: DARBEPOETIN ALFA
  17. ARANESP [Concomitant]
     Active Substance: DARBEPOETIN ALFA

REACTIONS (8)
  - Sleep disorder [Unknown]
  - Dermatitis atopic [Unknown]
  - Pruritus [Unknown]
  - Skin fissures [Unknown]
  - Skin exfoliation [Unknown]
  - Dry skin [Unknown]
  - Accidental exposure to product [Unknown]
  - Exposure via skin contact [Unknown]

NARRATIVE: CASE EVENT DATE: 20240101
